FAERS Safety Report 5655138-8 (Version None)
Quarter: 2008Q1

REPORT INFORMATION
  Report Type: 
  Country: None (occurrence: None)
  Receive Date: 20080307
  Receipt Date: 20080225
  Transmission Date: 20080703
  Serious: Yes (Hospitalization)
  Sender: FDA-Public Use
  Company Number: CZ-PURDUE-DEU_2007_0003914

PATIENT
  Age: 61 Year
  Sex: Male
  Weight: 60 kg

DRUGS (2)
  1. OXY/NALOXONE VS OXYCODONE [Suspect]
     Indication: CANCER PAIN
     Dosage: 80 MG, DAILY
     Route: 048
     Dates: start: 20071203, end: 20071210
  2. NIMESULIDE [Concomitant]

REACTIONS (1)
  - GRAND MAL CONVULSION [None]
